FAERS Safety Report 9310639 (Version 3)
Quarter: 2014Q3

REPORT INFORMATION
  Report Type: Spontaneous
  Country: US (occurrence: US)
  Receive Date: 20130527
  Receipt Date: 20140924
  Transmission Date: 20150326
  Serious: No
  Sender: FDA-Public Use
  Company Number: US-B.I. PHARMACEUTICALS,INC./RIDGEFIELD-2013-BI-14884BP

PATIENT
  Age: 84 Year
  Sex: Male
  Weight: 81.64 kg

DRUGS (3)
  1. ARTANE [Concomitant]
     Active Substance: TRIHEXYPHENIDYL HYDROCHLORIDE
     Indication: PARKINSON^S DISEASE
     Dosage: 6 MG
     Route: 048
     Dates: start: 201302, end: 201305
  2. PRADAXA [Suspect]
     Active Substance: DABIGATRAN ETEXILATE MESYLATE
     Indication: TRANSIENT ISCHAEMIC ATTACK
     Dosage: 300 MG
     Route: 048
     Dates: start: 20130522
  3. PRADAXA [Suspect]
     Active Substance: DABIGATRAN ETEXILATE MESYLATE
     Dosage: 300 MG
     Route: 048
     Dates: start: 201212, end: 20130517

REACTIONS (2)
  - Dry mouth [Recovered/Resolved]
  - Weight decreased [Not Recovered/Not Resolved]

NARRATIVE: CASE EVENT DATE: 201302
